FAERS Safety Report 6772532-2 (Version None)
Quarter: 2010Q2

REPORT INFORMATION
  Report Type: 
  Country: None (occurrence: None)
  Receive Date: 20100616
  Receipt Date: 20091112
  Transmission Date: 20101027
  Serious: No
  Sender: FDA-Public Use
  Company Number: US-ASTRAZENECA-2009SE26248

PATIENT
  Age: 86 Year
  Sex: Female
  Weight: 44.5 kg

DRUGS (5)
  1. PULMICORT RESPULES [Suspect]
     Route: 055
     Dates: start: 20091001
  2. ZOCOR [Concomitant]
  3. BLOOD PRESSURE MEDICATION [Concomitant]
  4. SINGULAIR [Concomitant]
  5. COMBIVENT [Concomitant]

REACTIONS (5)
  - APHONIA [None]
  - DRUG INEFFECTIVE [None]
  - FUNGAL SKIN INFECTION [None]
  - HEADACHE [None]
  - ORAL CANDIDIASIS [None]
